FAERS Safety Report 7021284-X (Version None)
Quarter: 2010Q3

REPORT INFORMATION
  Report Type: 
  Country: None (occurrence: None)
  Receive Date: 20100929
  Receipt Date: 20100917
  Transmission Date: 20110219
  Serious: Yes (Hospitalization)
  Sender: FDA-Public Use
  Company Number: JP-PFIZER INC-2010122425

PATIENT
  Age: 71 Year
  Sex: Male

DRUGS (1)
  1. CELECOX [Suspect]
     Indication: ARTHRALGIA
     Dosage: UNK
     Route: 048
     Dates: start: 20091001

REACTIONS (1)
  - NEPHROTIC SYNDROME [None]
